FAERS Safety Report 16912039 (Version 1)
Quarter: 2019Q4

REPORT INFORMATION
  Report Type: Spontaneous
  Country: US (occurrence: US)
  Receive Date: 20191014
  Receipt Date: 20191014
  Transmission Date: 20200122
  Serious: Yes (Other)
  Sender: FDA-Public Use
  Company Number: US-EMD SERONO-7032823

PATIENT
  Age: 36 Year
  Sex: Female

DRUGS (1)
  1. REBIF [Suspect]
     Active Substance: INTERFERON BETA-1A
     Indication: PRODUCT USED FOR UNKNOWN INDICATION
     Route: 058
     Dates: start: 20100907, end: 20110223

REACTIONS (6)
  - Injection site erythema [Not Recovered/Not Resolved]
  - Injection site necrosis [Recovered/Resolved]
  - Injection site scar [Not Recovered/Not Resolved]
  - Injection site pain [Recovered/Resolved]
  - Headache [Recovering/Resolving]
  - Hypoaesthesia [Not Recovered/Not Resolved]

NARRATIVE: CASE EVENT DATE: 201009
